FAERS Safety Report 21585552 (Version 1)
Quarter: 2022Q4

REPORT INFORMATION
  Report Type: Spontaneous
  Country: US (occurrence: None)
  Receive Date: 20221111
  Receipt Date: 20221111
  Transmission Date: 20230113
  Serious: No
  Sender: FDA-Public Use
  Company Number: 2022A145150

PATIENT
  Age: 23 Year
  Sex: Female

DRUGS (1)
  1. FASENRA [Suspect]
     Active Substance: BENRALIZUMAB
     Indication: Single umbilical artery
     Dosage: 30.0MG UNKNOWN
     Route: 058
     Dates: start: 20220218

REACTIONS (1)
  - Rash pruritic [Recovered/Resolved]
